FAERS Safety Report 5488899-1 (Version None)
Quarter: 2007Q4

REPORT INFORMATION
  Report Type: 
  Country: None (occurrence: None)
  Receive Date: 20071017
  Receipt Date: 20071005
  Transmission Date: 20080405
  Serious: Yes (Hospitalization)
  Sender: FDA-Public Use
  Company Number: US-SHR-US-2007-033982

PATIENT
  Age: 41 Year
  Sex: Female
  Weight: 108.84 kg

DRUGS (11)
  1. BETASERON [Suspect]
     Indication: SECONDARY PROGRESSIVE MULTIPLE SCLEROSIS
     Route: 058
     Dates: start: 20011207, end: 20070625
  2. BETASERON [Suspect]
     Dosage: 8 MIU, EVERY 2D
     Route: 058
     Dates: start: 20070704
  3. NEURONTIN [Concomitant]
     Dosage: 800 MG, 3X/DAY
  4. BACLOFEN [Concomitant]
     Dosage: 10 MG, 4X/DAY
  5. PROVIGIL [Concomitant]
     Dosage: 200 MG/D, UNK
  6. CYMBALTA [Concomitant]
     Dosage: 30 MG, 2X/DAY
  7. METOPROLOL [Concomitant]
     Dosage: 50 MG, 2X/DAY
  8. COZAAR [Concomitant]
     Dosage: 50 MG/D, UNK
  9. SEROQUEL [Concomitant]
     Dosage: 600 MG, BED T.
  10. DILAUDID [Concomitant]
     Dosage: 4 MG Q 6-8 HRS, AS REQ'D
  11. CORTICOSTEROIDS [Concomitant]
     Dates: start: 19970101, end: 20070101

REACTIONS (5)
  - AMNESIA [None]
  - ANKLE FRACTURE [None]
  - FALL [None]
  - HEAD INJURY [None]
  - LOSS OF CONSCIOUSNESS [None]
